FAERS Safety Report 8321352-6 (Version None)
Quarter: 2012Q2

REPORT INFORMATION
  Report Type: 
  Country: None (occurrence: None)
  Receive Date: 20120430
  Receipt Date: 20120417
  Transmission Date: 20120825
  Serious: Yes (Other)
  Sender: FDA-Public Use
  Company Number: PHHY2012DE033069

PATIENT
  Age: 32 Year
  Sex: Female
  Weight: 68 kg

DRUGS (1)
  1. CYCLOSPORINE [Suspect]
     Indication: CORNEAL TRANSPLANT
     Dosage: 1 DRP, QD
     Route: 047
     Dates: start: 20090720, end: 20100425

REACTIONS (4)
  - MATERNAL EXPOSURE DURING PREGNANCY [None]
  - PROTEINURIA [None]
  - GESTATIONAL DIABETES [None]
  - GESTATIONAL HYPERTENSION [None]
